FAERS Safety Report 7199462-9 (Version None)
Quarter: 2010Q4

REPORT INFORMATION
  Report Type: 
  Country: None (occurrence: None)
  Receive Date: 20101228
  Receipt Date: 20101213
  Transmission Date: 20110411
  Serious: Yes (Other)
  Sender: FDA-Public Use
  Company Number: PHHY2010US69129

PATIENT
  Sex: Female
  Weight: 78 kg

DRUGS (6)
  1. EXJADE [Suspect]
     Indication: SICKLE CELL ANAEMIA
     Dosage: 1500 MG, QD
     Route: 048
     Dates: start: 20100716
  2. EXJADE [Suspect]
     Dosage: 1000 MG, ONCE DAILY
     Route: 048
     Dates: start: 20100901
  3. TOPROL-XL [Concomitant]
     Indication: ARRHYTHMIA
     Dosage: 100 MG, DAILY
     Route: 048
  4. FOLIC ACID [Concomitant]
     Indication: SICKLE CELL ANAEMIA
     Dosage: 2 MG,DAILY
     Route: 048
  5. FUROSEMIDE [Concomitant]
     Indication: PULMONARY HYPERTENSION
     Dosage: 20 MG, DAILY
     Route: 048
  6. SILDENAFIL [Concomitant]
     Indication: PULMONARY HYPERTENSION
     Dosage: 100 MG,EVERY 8 HOURS
     Route: 048

REACTIONS (7)
  - ABDOMINAL PAIN [None]
  - DIARRHOEA [None]
  - DIZZINESS [None]
  - NAUSEA [None]
  - OOPHORECTOMY [None]
  - OVARIAN CYST [None]
  - VOMITING [None]
